FAERS Safety Report 14788491 (Version 2)
Quarter: 2018Q3

REPORT INFORMATION
  Report Type: Report from Study
  Country: US (occurrence: US)
  Receive Date: 20180423
  Receipt Date: 20180907
  Transmission Date: 20181010
  Serious: Yes (Other)
  Sender: FDA-Public Use
  Company Number: US-ALEXION PHARMACEUTICALS INC.-A201804503

PATIENT
  Sex: Male

DRUGS (1)
  1. STRENSIQ [Suspect]
     Active Substance: ASFOTASE ALFA
     Indication: PRODUCT USED FOR UNKNOWN INDICATION
     Dosage: UNK
     Route: 065

REACTIONS (6)
  - Skin disorder [Unknown]
  - Bacterial infection [Recovering/Resolving]
  - Depression [Recovering/Resolving]
  - Fibromyalgia [Recovering/Resolving]
  - Pain [Unknown]
  - Systemic lupus erythematosus [Recovering/Resolving]
